FAERS Safety Report 8529920-3 (Version None)
Quarter: 2012Q3

REPORT INFORMATION
  Report Type: 
  Country: None (occurrence: None)
  Receive Date: 20120723
  Receipt Date: 20120717
  Transmission Date: 20120928
  Serious: Yes (Death, Life-Threatening, Hospitalization, Other)
  Sender: FDA-Public Use
  Company Number: NL-GENZYME-CLOF-1002178

PATIENT
  Sex: Female
  Weight: 73 kg

DRUGS (6)
  1. MEROPENEM [Concomitant]
     Indication: INFECTION
     Dosage: 3000 MG, UNK
     Route: 042
     Dates: start: 20120518
  2. CYTARABINE [Suspect]
     Indication: ACUTE MYELOID LEUKAEMIA
     Dosage: 1900 MG, UNK
     Route: 042
     Dates: start: 20120507
  3. VANCOMYCIN [Concomitant]
     Indication: INFECTION
     Dosage: 3000 MG, UNK
     Route: 042
     Dates: start: 20120525
  4. AMSACRINE [Suspect]
     Indication: ACUTE MYELOID LEUKAEMIA
     Dosage: 225 MG, UNK
     Route: 042
     Dates: start: 20120510
  5. CLOFARABINE [Suspect]
     Indication: ACUTE MYELOID LEUKAEMIA
     Dosage: 19 MG, UNK
     Route: 042
     Dates: start: 20120507
  6. AMPHOTERICIN B [Concomitant]
     Indication: ASPERGILLOSIS
     Dosage: 225 MG, UNK
     Route: 042
     Dates: start: 20120604

REACTIONS (6)
  - RESPIRATORY FAILURE [None]
  - PANCYTOPENIA [None]
  - INFLUENZA [None]
  - BRONCHOPULMONARY ASPERGILLOSIS [None]
  - CEREBRAL HAEMORRHAGE [None]
  - THROMBOCYTOPENIA [None]
